FAERS Safety Report 24338810 (Version 1)
Quarter: 2024Q3

REPORT INFORMATION
  Report Type: Report from Study
  Country: DE (occurrence: DE)
  Receive Date: 20240919
  Receipt Date: 20240919
  Transmission Date: 20241017
  Serious: Yes (Hospitalization)
  Sender: TEVA
  Company Number: DE-TEVA-VS-3242562

PATIENT
  Age: 14 Year
  Sex: Female

DRUGS (9)
  1. METHOTREXATE [Suspect]
     Active Substance: METHOTREXATE
     Indication: Dermatomyositis
     Route: 065
  2. CYCLOSPORINE [Suspect]
     Active Substance: CYCLOSPORINE
     Indication: Dermatomyositis
     Route: 065
  3. ACYCLOVIR [Suspect]
     Active Substance: ACYCLOVIR
     Indication: Antiviral prophylaxis
     Route: 065
  4. RITUXIMAB [Suspect]
     Active Substance: RITUXIMAB
     Indication: Dermatomyositis
     Route: 065
  5. CYCLOPHOSPHAMIDE [Concomitant]
     Active Substance: CYCLOPHOSPHAMIDE
     Indication: Haematopoietic stem cell mobilisation
     Route: 065
  6. FLUCONAZOLE [Suspect]
     Active Substance: FLUCONAZOLE
     Indication: Antifungal prophylaxis
     Route: 065
  7. IMMUNE GLOBULIN NOS [Suspect]
     Active Substance: IMMUNE GLOBULIN NOS
     Indication: Dermatomyositis
     Route: 042
  8. FLUDARABINE [Concomitant]
     Active Substance: FLUDARABINE PHOSPHATE
     Indication: Bone marrow conditioning regimen
     Route: 065
  9. SULFAMETHOXAZOLE\TRIMETHOPRIM [Concomitant]
     Active Substance: SULFAMETHOXAZOLE\TRIMETHOPRIM
     Indication: Antibiotic prophylaxis
     Route: 065

REACTIONS (3)
  - White blood cell count decreased [Unknown]
  - Transaminases increased [Unknown]
  - Drug ineffective [Unknown]
